FAERS Safety Report 11444754 (Version 1)
Quarter: 2015Q3

REPORT INFORMATION
  Report Type: Report from Study
  Country: IN (occurrence: IN)
  Receive Date: 20150902
  Receipt Date: 20150902
  Transmission Date: 20151125
  Serious: Yes (Hospitalization)
  Sender: FDA-Public Use
  Company Number: IN-UNITED THERAPEUTICS-REM_00140_2005

PATIENT
  Age: 23 Year
  Sex: Female
  Weight: 43 kg

DRUGS (9)
  1. TREPROSTINIL SODIUM (SQ/IV) [Suspect]
     Active Substance: TREPROSTINIL SODIUM
     Indication: PULMONARY HYPERTENSION
  2. FUROSEMIDE. [Concomitant]
     Active Substance: FUROSEMIDE
     Indication: OEDEMA
     Route: 048
     Dates: start: 20050709
  3. LASILACTONE [Concomitant]
     Active Substance: FUROSEMIDE\SPIRONOLACTONE
     Indication: OEDEMA
     Route: 048
     Dates: start: 20050709
  4. TREPROSTINIL SODIUM (SQ/IV) [Suspect]
     Active Substance: TREPROSTINIL SODIUM
     Dosage: 10 NG/KG/MIN
     Route: 042
     Dates: start: 20050801
  5. ACENOCOUMADIN [Concomitant]
     Indication: PULMONARY ARTERIAL HYPERTENSION
     Route: 048
     Dates: start: 20050710
  6. TREPROSTINIL SODIUM (SQ/IV) [Suspect]
     Active Substance: TREPROSTINIL SODIUM
     Dosage: 8 NG/KG/MIN
     Route: 042
     Dates: start: 20050718, end: 20050728
  7. AUGMENTIN [Concomitant]
     Active Substance: AMOXICILLIN\CLAVULANATE POTASSIUM
     Dosage: 2.4 G
     Route: 042
     Dates: start: 20050717, end: 20050720
  8. DIGOXIN. [Concomitant]
     Active Substance: DIGOXIN
     Indication: PULMONARY ARTERIAL HYPERTENSION
     Route: 048
     Dates: start: 20050709
  9. AUGMENTIN [Concomitant]
     Active Substance: AMOXICILLIN\CLAVULANATE POTASSIUM
     Indication: PROPHYLAXIS
     Dosage: 2.4 G
     Route: 042
     Dates: start: 20050717, end: 20050720

REACTIONS (2)
  - Pseudomonas infection [Recovered/Resolved]
  - Thrombophlebitis [Recovered/Resolved with Sequelae]

NARRATIVE: CASE EVENT DATE: 20050719
